FAERS Safety Report 6676902-2 (Version None)
Quarter: 2010Q2

REPORT INFORMATION
  Report Type: 
  Country: None (occurrence: None)
  Receive Date: 20100412
  Receipt Date: 20100331
  Transmission Date: 20101027
  Serious: Yes (Other)
  Sender: FDA-Public Use
  Company Number: US-PFIZER INC-2010043169

PATIENT

DRUGS (8)
  1. ADRIAMYCIN PFS [Suspect]
     Indication: HODGKIN'S DISEASE
  2. DEXRAZOXANE [Suspect]
     Indication: HODGKIN'S DISEASE
  3. BLEOMYCIN [Suspect]
     Indication: HODGKIN'S DISEASE
  4. VINCRISTINE [Suspect]
     Indication: HODGKIN'S DISEASE
  5. ETOPOSIDE [Suspect]
     Indication: HODGKIN'S DISEASE
  6. PREDNISONE [Suspect]
     Indication: HODGKIN'S DISEASE
  7. CYCLOPHOSPHAMIDE [Suspect]
     Indication: HODGKIN'S DISEASE
  8. NEUPOGEN [Concomitant]

REACTIONS (2)
  - BONE SARCOMA [None]
  - NEOPLASM MALIGNANT [None]
